FAERS Safety Report 13630040 (Version 1)
Quarter: 2017Q2

REPORT INFORMATION
  Report Type: Spontaneous
  Country: US (occurrence: US)
  Receive Date: 20170531
  Receipt Date: 20170531
  Transmission Date: 20170830
  Serious: No
  Sender: FDA-Public Use
  Company Number: US-ASTELLAS-1271675

PATIENT
  Sex: Female

DRUGS (7)
  1. TARCEVA [Suspect]
     Active Substance: ERLOTINIB HYDROCHLORIDE
     Indication: LUNG NEOPLASM MALIGNANT
     Route: 048
     Dates: start: 20130822
  2. HYDRALAZINE HCL [Concomitant]
     Active Substance: HYDRALAZINE HYDROCHLORIDE
  3. OMEPRAZOLE. [Concomitant]
     Active Substance: OMEPRAZOLE
  4. ASPIRIN EC [Concomitant]
     Active Substance: ASPIRIN
  5. RANITIDINE. [Concomitant]
     Active Substance: RANITIDINE
  6. COLCRYS [Concomitant]
     Active Substance: COLCHICINE
  7. METOCLOPRAMIDE HCL [Concomitant]
     Active Substance: METOCLOPRAMIDE HYDROCHLORIDE

REACTIONS (7)
  - Dermatitis acneiform [Unknown]
  - Diarrhoea [Unknown]
  - Arthralgia [Unknown]
  - Onychomadesis [Unknown]
  - Alopecia [Unknown]
  - Vomiting [Unknown]
  - Vision blurred [Unknown]
